FAERS Safety Report 8682302 (Version 2)
Quarter: 2012Q4

REPORT INFORMATION
  Report Type: 
  Country: US (occurrence: US)
  Receive Date: 20120725
  Receipt Date: 20120829
  Transmission Date: 20130627
  Serious: Yes (Other)
  Sender: FDA-Public Use
  Company Number: US-FRI-1000037168

PATIENT
  Age: 53 Year
  Sex: Female
  Weight: 110.2 kg

DRUGS (7)
  1. ARMOUR THYROID [Suspect]
     Indication: HYPOTHYROIDISM
     Dosage: 180 mg
     Route: 048
     Dates: start: 1980, end: 2011
  2. ARMOUR THYROID [Suspect]
     Indication: HYPOTHYROIDISM
     Dosage: 180 mg
     Route: 048
     Dates: start: 2011, end: 201207
  3. ARMOUR THYROID [Suspect]
     Dosage: 120 mg
     Route: 048
     Dates: start: 201207, end: 2012
  4. ARMOUR THYROID [Suspect]
     Indication: HYPOTHYROIDISM
     Dosage: 180 mg
     Route: 048
     Dates: start: 2012
  5. VICODIN [Concomitant]
  6. SOMA [Concomitant]
  7. DALMANE [Concomitant]
     Indication: INSOMNIA

REACTIONS (15)
  - Weight decreased [Recovered/Resolved]
  - Onychoclasis [Unknown]
  - Visual impairment [Recovered/Resolved]
  - Chest pain [Not Recovered/Not Resolved]
  - Dyspnoea [Recovered/Resolved]
  - Palpitations [Recovered/Resolved]
  - Blood thyroid stimulating hormone decreased [Not Recovered/Not Resolved]
  - Weight increased [Not Recovered/Not Resolved]
  - Fatigue [Not Recovered/Not Resolved]
  - Malaise [Not Recovered/Not Resolved]
  - Hyperhidrosis [Not Recovered/Not Resolved]
  - Somnolence [Not Recovered/Not Resolved]
  - Swelling [Not Recovered/Not Resolved]
  - Insomnia [Not Recovered/Not Resolved]
  - Drug ineffective [Not Recovered/Not Resolved]
